FAERS Safety Report 6101687-8 (Version None)
Quarter: 2009Q1

REPORT INFORMATION
  Report Type: 
  Country: None (occurrence: None)
  Receive Date: 20090304
  Receipt Date: 20090226
  Transmission Date: 20090719
  Serious: Yes (Other)
  Sender: FDA-Public Use
  Company Number: JP-BRISTOL-MYERS SQUIBB COMPANY-14016521

PATIENT
  Age: 22 Year
  Sex: Male

DRUGS (3)
  1. LASTET [Suspect]
     Indication: TESTICULAR CANCER METASTATIC
     Dosage: ADMINISTERED ON DAYS 1 TO 5
     Route: 042
  2. RANDA [Suspect]
     Indication: TESTICULAR CANCER METASTATIC
     Dosage: ADMINISTERED ON DAYS 1 TO 5
     Route: 042
  3. BLEOMYCIN SULFATE [Suspect]
     Dosage: ADMINISTERED ON 2, 9 AND 18
     Route: 042

REACTIONS (5)
  - BONE MARROW FAILURE [None]
  - PROSTATIC ABSCESS [None]
  - PSEUDOMONAS INFECTION [None]
  - PYREXIA [None]
  - WHITE BLOOD CELL COUNT DECREASED [None]
